FAERS Safety Report 13076811 (Version 1)
Quarter: 2016Q4

REPORT INFORMATION
  Report Type: Other
  Country: US (occurrence: US)
  Receive Date: 20161230
  Receipt Date: 20161230
  Transmission Date: 20170207
  Serious: Yes (Hospitalization)
  Sender: FDA-Public Use
  Company Number: US-P+L DEVELOPMENT, LLC-1061417

PATIENT
  Age: 63 Year
  Sex: Female
  Weight: 81.82 kg

DRUGS (1)
  1. NIGHT TIME COLD AND FLU MULTI SYMPTOM [Suspect]
     Active Substance: ACETAMINOPHEN\DEXTROMETHORPHAN HYDROBROMIDE\DOXYLAMINE SUCCINATE
     Indication: COUGH
     Route: 048
     Dates: start: 20161015, end: 20161015

REACTIONS (4)
  - Dysphonia [Recovering/Resolving]
  - Foreign body [None]
  - Pharyngeal oedema [Recovering/Resolving]
  - Oropharyngeal pain [Recovering/Resolving]

NARRATIVE: CASE EVENT DATE: 20161015
